FAERS Safety Report 5689379-0 (Version None)
Quarter: 2008Q1

REPORT INFORMATION
  Report Type: 
  Country: None (occurrence: None)
  Receive Date: 20080328
  Receipt Date: 20080321
  Transmission Date: 20080703
  Serious: Yes (Hospitalization)
  Sender: FDA-Public Use
  Company Number: FABR-1000154

PATIENT
  Age: 52 Year
  Sex: Female

DRUGS (1)
  1. FABRAZYME [Suspect]
     Indication: FABRY'S DISEASE
     Dates: start: 20031020

REACTIONS (4)
  - ARTHRALGIA [None]
  - HEMIPARESIS [None]
  - HEPATIC FAILURE [None]
  - PULMONARY EMBOLISM [None]
